FAERS Safety Report 7485324-6 (Version None)
Quarter: 2011Q2

REPORT INFORMATION
  Report Type: 
  Country: None (occurrence: None)
  Receive Date: 20110517
  Receipt Date: 20101220
  Transmission Date: 20111010
  Serious: Yes (Other)
  Sender: FDA-Public Use
  Company Number: US-BAYER-201032538NA

PATIENT
  Age: 28 Year
  Sex: Female
  Weight: 104.31 kg

DRUGS (15)
  1. YAZ [Suspect]
     Indication: CONTRACEPTION
     Route: 048
     Dates: start: 20070801, end: 20080601
  2. YASMIN [Suspect]
     Indication: CONTRACEPTION
     Route: 048
     Dates: start: 20070801, end: 20080601
  3. FLUTICASONE PROPIONATE [Concomitant]
  4. PREDNISONE TAB [Concomitant]
     Dosage: 20 MG, UNK
     Dates: start: 20071010, end: 20071017
  5. AZITHROMYCIN [Concomitant]
     Dosage: UNK
     Dates: start: 20080226, end: 20080302
  6. ZYRTEC [Concomitant]
  7. BETAMETHASONE W/CLOTRIMAZOLE [Concomitant]
  8. PROMETRIUM [Concomitant]
     Dosage: 200 MG, UNK
     Route: 048
     Dates: start: 20070801
  9. NOREL [Concomitant]
  10. FLONASE [Concomitant]
  11. BUTALBITAL ACETAMINOPHEN AND CAFFEINE [Concomitant]
     Dosage: UNK
     Dates: start: 20071018, end: 20071021
  12. EXCEDRIN (MIGRAINE) [Concomitant]
     Dosage: UNK
     Dates: start: 20070101
  13. DROSPIRENONE AND ETHINYL ESTRADIOL [Suspect]
     Indication: CONTRACEPTION
     Route: 048
     Dates: start: 20070801, end: 20080715
  14. METOCLOPRAMIDE [Concomitant]
     Dosage: UNK
     Dates: start: 20071018, end: 20071020
  15. CETIRIZINE HCL [Concomitant]

REACTIONS (7)
  - ABDOMINAL PAIN UPPER [None]
  - CHOLESTEROSIS [None]
  - CHOLECYSTITIS CHRONIC [None]
  - DIARRHOEA [None]
  - BILIARY DYSKINESIA [None]
  - NAUSEA [None]
  - MELAENA [None]
